FAERS Safety Report 20827798 (Version 1)
Quarter: 2022Q2

REPORT INFORMATION
  Report Type: Spontaneous
  Country: BR (occurrence: BR)
  Receive Date: 20220513
  Receipt Date: 20220513
  Transmission Date: 20220721
  Serious: Yes (Disabling, Other)
  Sender: FDA-Public Use
  Company Number: BR-TAKEDA-2019TUS057752

PATIENT
  Sex: Female
  Weight: 55 kg

DRUGS (5)
  1. DEXILANT [Suspect]
     Active Substance: DEXLANSOPRAZOLE
     Indication: Gastrooesophageal reflux disease
     Dosage: 60 MILLIGRAM, QD
     Route: 048
     Dates: start: 20190828
  2. DEXILANT [Suspect]
     Active Substance: DEXLANSOPRAZOLE
     Indication: Erosive oesophagitis
     Dosage: UNK
     Route: 065
     Dates: start: 201910
  3. DEXILANT [Suspect]
     Active Substance: DEXLANSOPRAZOLE
     Indication: Gastritis
     Dosage: UNK UNK, QD
     Route: 048
     Dates: start: 20220422, end: 20220505
  4. DEXILANT [Suspect]
     Active Substance: DEXLANSOPRAZOLE
     Indication: Oesophagitis
  5. DOMPERIDONE [Suspect]
     Active Substance: DOMPERIDONE
     Indication: Adverse drug reaction
     Dosage: UNK
     Route: 065

REACTIONS (19)
  - Disability [Unknown]
  - Pollakiuria [Unknown]
  - Off label use [Unknown]
  - Chest discomfort [Unknown]
  - Faeces soft [Unknown]
  - Impaired work ability [Unknown]
  - Malaise [Unknown]
  - Chest pain [Recovered/Resolved]
  - Tachycardia [Recovered/Resolved]
  - Dizziness [Recovered/Resolved]
  - Dyspepsia [Unknown]
  - Muscle spasms [Unknown]
  - Throat tightness [Unknown]
  - Anxiety [Unknown]
  - Adverse drug reaction [Unknown]
  - Abdominal pain [Unknown]
  - Nausea [Unknown]
  - Diarrhoea [Unknown]
  - Condition aggravated [Unknown]

NARRATIVE: CASE EVENT DATE: 20190101
